FAERS Safety Report 13436366 (Version 1)
Quarter: 2017Q2

REPORT INFORMATION
  Report Type: Spontaneous
  Country: FR (occurrence: FR)
  Receive Date: 20170413
  Receipt Date: 20170413
  Transmission Date: 20170830
  Serious: Yes (Other)
  Sender: FDA-Public Use
  Company Number: FR-PFIZER INC-2017156487

PATIENT
  Sex: Female

DRUGS (2)
  1. CYTOTEC [Suspect]
     Active Substance: MISOPROSTOL
     Dosage: UNK
  2. MIFEGYNE [Suspect]
     Active Substance: MIFEPRISTONE
     Dosage: UNK

REACTIONS (2)
  - Product use in unapproved indication [Unknown]
  - Endometritis [Unknown]
